FAERS Safety Report 11306125 (Version 1)
Quarter: 2015Q3

REPORT INFORMATION
  Report Type: Spontaneous
  Country: BR (occurrence: BR)
  Receive Date: 20150723
  Receipt Date: 20150723
  Transmission Date: 20151125
  Serious: Yes (Other)
  Sender: FDA-Public Use
  Company Number: BR-JNJFOC-20150713302

PATIENT
  Age: 67 Year
  Sex: Male
  Weight: 59 kg

DRUGS (2)
  1. REMICADE [Suspect]
     Active Substance: INFLIXIMAB
     Indication: CROHN^S DISEASE
     Route: 042
     Dates: start: 20150508
  2. REMICADE [Suspect]
     Active Substance: INFLIXIMAB
     Indication: CROHN^S DISEASE
     Dosage: APPROXIMATELY ONE YEAR
     Route: 042
     Dates: start: 201206

REACTIONS (2)
  - Inappropriate schedule of drug administration [Unknown]
  - Herpes ophthalmic [Unknown]

NARRATIVE: CASE EVENT DATE: 201505
